FAERS Safety Report 6909087-5 (Version None)
Quarter: 2010Q3

REPORT INFORMATION
  Report Type: 
  Country: None (occurrence: None)
  Receive Date: 20100716
  Receipt Date: 20090120
  Transmission Date: 20110219
  Serious: Yes (Hospitalization)
  Sender: FDA-Public Use
  Company Number: 2008029963

PATIENT
  Age: 61 Year
  Sex: Female

DRUGS (2)
  1. CELEBREX [Suspect]
     Indication: MYALGIA
     Dosage: 1-2 TIMES A DAY, ORAL
     Route: 048
     Dates: start: 20010501, end: 20011001
  2. CELEBREX [Suspect]
     Indication: PAIN MANAGEMENT
     Dosage: 1-2 TIMES A DAY, ORAL
     Route: 048
     Dates: start: 20010501, end: 20011001

REACTIONS (3)
  - INCISION SITE PAIN [None]
  - MYOCARDIAL INFARCTION [None]
  - NEURALGIA [None]
